FAERS Safety Report 5270188-1 (Version None)
Quarter: 2007Q1

REPORT INFORMATION
  Report Type: 
  Country: None (occurrence: None)
  Receive Date: 20070320
  Receipt Date: 20070309
  Transmission Date: 20070707
  Serious: Yes (Other)
  Sender: FDA-Public Use
  Company Number: JP-SANOFI-SYNTHELABO-A01200702795

PATIENT
  Age: 50 Year
  Sex: Female

DRUGS (3)
  1. FLUOROURACIL [Suspect]
     Dosage: UNK
     Route: 042
     Dates: start: 20070201, end: 20070201
  2. LEUCOVORIN CALCIUM [Suspect]
     Dosage: UNK
     Route: 042
     Dates: start: 20070201, end: 20070201
  3. OXALIPLATIN [Suspect]
     Dosage: UNK
     Route: 042
     Dates: start: 20070201, end: 20070201

REACTIONS (1)
  - DISSEMINATED INTRAVASCULAR COAGULATION [None]
